FAERS Safety Report 5066016-X (Version None)
Quarter: 2006Q3

REPORT INFORMATION
  Report Type: 
  Country: None (occurrence: None)
  Receive Date: 20060731
  Receipt Date: 20060731
  Transmission Date: 20061208
  Serious: Yes (Other)
  Sender: FDA-Public Use
  Company Number: None

PATIENT
  Age: 52 Year
  Sex: Female
  Weight: 49.8957 kg

DRUGS (1)
  1. SLO NIACIN     500 MG     UPSHER-SMITH LABORATORIES, INC. [Suspect]
     Indication: HYPERCHOLESTEROLAEMIA
     Dosage: 500 MG     1       PO
     Route: 048
     Dates: start: 20060729, end: 20060729

REACTIONS (3)
  - PRURITUS [None]
  - RASH MACULO-PAPULAR [None]
  - SKIN BURNING SENSATION [None]
